FAERS Safety Report 20999387 (Version 2)
Quarter: 2022Q3

REPORT INFORMATION
  Report Type: Spontaneous
  Country: US (occurrence: US)
  Receive Date: 20220623
  Receipt Date: 20220708
  Transmission Date: 20221026
  Serious: Yes (Hospitalization)
  Sender: FDA-Public Use
  Company Number: US-TEVA-2022-US-2047532

PATIENT
  Age: 92 Year
  Sex: Male

DRUGS (2)
  1. AZACITIDINE [Suspect]
     Active Substance: AZACITIDINE
     Indication: Acute myeloid leukaemia
     Dosage: ON DAY 1-7
     Route: 042
  2. VENETOCLAX [Suspect]
     Active Substance: VENETOCLAX
     Indication: Acute myeloid leukaemia
     Dosage: 400 MILLIGRAM DAILY; ON DAYS 1-21, AND ADDITIONAL THERAPY FOR 14 DAYS
     Route: 065

REACTIONS (4)
  - Nausea [Unknown]
  - Weight decreased [Unknown]
  - Physical deconditioning [Unknown]
  - Fatigue [Unknown]
